FAERS Safety Report 5211574-5 (Version None)
Quarter: 2007Q1

REPORT INFORMATION
  Report Type: 
  Country: None (occurrence: None)
  Receive Date: 20070116
  Receipt Date: 20070116
  Transmission Date: 20070707
  Serious: Yes (Other)
  Sender: FDA-Public Use
  Company Number: None

PATIENT
  Sex: Female

DRUGS (2)
  1. BENAZEPRIL HCL [Suspect]
     Indication: HYPERTENSION
     Dosage: 20 MG 1 PER DAY MOUTH [2 MS ON + OCTOBER 06OFF]
     Dates: start: 20061001
  2. LOVASTATIN [Suspect]
     Dosage: 40 MG 1 PER DAY MONTH [2 MS ON + OFF OVTOBER 06]
     Dates: start: 20061001

REACTIONS (5)
  - DIZZINESS [None]
  - FATIGUE [None]
  - NAUSEA [None]
  - PARAESTHESIA [None]
  - PHARMACEUTICAL PRODUCT COMPLAINT [None]
